FAERS Safety Report 9998569 (Version 1)
Quarter: 2014Q1

REPORT INFORMATION
  Report Type: Spontaneous
  Country: US (occurrence: US)
  Receive Date: 20140312
  Receipt Date: 20140312
  Transmission Date: 20141002
  Serious: No
  Sender: FDA-Public Use
  Company Number: US-BIOGENIDEC-2014BI018873

PATIENT
  Age: 48 Year
  Sex: Female
  Weight: 56 kg

DRUGS (12)
  1. TECFIDERA [Suspect]
     Indication: PRODUCT USED FOR UNKNOWN INDICATION
     Route: 048
  2. KLONOPIN [Concomitant]
  3. XANAX [Concomitant]
  4. LOMOTIL [Concomitant]
  5. ACYCLOVIR [Concomitant]
  6. NALTREXONE [Concomitant]
  7. AMPYRA [Concomitant]
  8. VITAMIN E [Concomitant]
  9. CO Q-10 [Concomitant]
  10. VITAMIN D [Concomitant]
  11. IMMMUNE GLOBULIN HUMAN [Concomitant]
  12. CUBICIN SOL [Concomitant]

REACTIONS (1)
  - Platelet count decreased [Unknown]
